FAERS Safety Report 8909911 (Version 2)
Quarter: 2013Q1

REPORT INFORMATION
  Report Type: Spontaneous
  Country: US (occurrence: US)
  Receive Date: 20121115
  Receipt Date: 20130129
  Transmission Date: 20140127
  Serious: Yes (Hospitalization, Other)
  Sender: FDA-Public Use
  Company Number: US-PFIZER INC-2012283280

PATIENT
  Age: 59 Year
  Sex: Male
  Weight: 72 kg

DRUGS (3)
  1. CELEBREX [Suspect]
     Indication: PSORIATIC ARTHROPATHY
     Dosage: 200 MG, 1 CAP ONCE OR TWICE PER DAY (1-2 QD)
     Route: 048
     Dates: start: 20020510, end: 20121109
  2. CELEBREX [Suspect]
     Indication: ARTHRALGIA
  3. NORCO [Concomitant]
     Dosage: 10, UNK

REACTIONS (7)
  - Pernicious anaemia [Unknown]
  - Disorientation [Unknown]
  - Fatigue [Recovering/Resolving]
  - Activities of daily living impaired [Unknown]
  - Muscle spasms [Recovering/Resolving]
  - Burning sensation [Recovering/Resolving]
  - Confusional state [Recovering/Resolving]
